FAERS Safety Report 18765567 (Version 1)
Quarter: 2021Q1

REPORT INFORMATION
  Report Type: Spontaneous
  Country: CN (occurrence: CN)
  Receive Date: 20210121
  Receipt Date: 20210121
  Transmission Date: 20210419
  Serious: Yes (Other)
  Sender: FDA-Public Use
  Company Number: CN-009507513-2101CHN008000

PATIENT
  Age: 74 Year
  Sex: Male
  Weight: 71 kg

DRUGS (1)
  1. TIENAM [Suspect]
     Active Substance: CILASTATIN SODIUM\IMIPENEM
     Indication: SYMPTOMATIC TREATMENT
     Dosage: DOSE: 1000 MG, Q8H
     Route: 041
     Dates: start: 20201222, end: 20201222

REACTIONS (2)
  - Delirium [Recovering/Resolving]
  - Abdominal tenderness [Unknown]

NARRATIVE: CASE EVENT DATE: 20201223
